FAERS Safety Report 17434576 (Version 1)
Quarter: 2020Q1

REPORT INFORMATION
  Report Type: Spontaneous
  Country: ES (occurrence: ES)
  Receive Date: 20200219
  Receipt Date: 20200219
  Transmission Date: 20200409
  Serious: Yes (Hospitalization)
  Sender: FDA-Public Use
  Company Number: ES-MYLANLABS-2020M1016609

PATIENT
  Age: 78 Year
  Sex: Female

DRUGS (4)
  1. ESOMEPRAZOLE. [Suspect]
     Active Substance: ESOMEPRAZOLE MAGNESIUM
     Indication: PRODUCT USED FOR UNKNOWN INDICATION
     Dosage: 20 MILLIGRAM, QD
     Route: 048
     Dates: start: 20191030
  2. LORAZEPAM. [Concomitant]
     Active Substance: LORAZEPAM
     Indication: NEOPLASM MALIGNANT
     Dosage: 0.5 MILLIGRAM, QD
     Route: 048
     Dates: start: 20191029
  3. CETUXIMAB. [Concomitant]
     Active Substance: CETUXIMAB
     Indication: SQUAMOUS CELL CARCINOMA
     Dosage: UNK
     Dates: start: 2019
  4. DEXKETOPROFENO [Suspect]
     Active Substance: DEXKETOPROFEN
     Indication: NEOPLASM MALIGNANT
     Dosage: 25 MILLIGRAM, Q8H
     Route: 048
     Dates: start: 20190613

REACTIONS (1)
  - Gastrointestinal haemorrhage [Recovered/Resolved]

NARRATIVE: CASE EVENT DATE: 20191211
